FAERS Safety Report 5616211-3 (Version None)
Quarter: 2008Q1

REPORT INFORMATION
  Report Type: 
  Country: None (occurrence: None)
  Receive Date: 20080201
  Receipt Date: 20080122
  Transmission Date: 20080703
  Serious: Yes (Hospitalization)
  Sender: FDA-Public Use
  Company Number: 2007BI025602

PATIENT
  Age: 53 Year
  Sex: Male

DRUGS (7)
  1. AVONEX [Suspect]
     Indication: MULTIPLE SCLEROSIS
     Dosage: 30 UG; QW; IM
     Route: 030
     Dates: start: 19980201
  2. RESTORIL [Concomitant]
  3. ASPIRIN [Concomitant]
  4. NORTRIPTYLINE HCL [Concomitant]
  5. DIOVAN [Concomitant]
  6. FORADIL [Concomitant]
  7. TYLENOL (CAPLET) [Concomitant]

REACTIONS (8)
  - BURSITIS [None]
  - CLOSTRIDIUM DIFFICILE COLITIS [None]
  - COUGH [None]
  - DYSPHAGIA [None]
  - PALPITATIONS [None]
  - PHARYNGOLARYNGEAL PAIN [None]
  - STAPHYLOCOCCAL INFECTION [None]
  - TACHYCARDIA [None]
